FAERS Safety Report 6699311-9 (Version None)
Quarter: 2010Q2

REPORT INFORMATION
  Report Type: 
  Country: None (occurrence: None)
  Receive Date: 20100427
  Receipt Date: 20100415
  Transmission Date: 20101027
  Serious: Yes (Hospitalization, Disabling, Other)
  Sender: FDA-Public Use
  Company Number: US-ELI_LILLY_AND_COMPANY-US200911006138

PATIENT
  Sex: Male
  Weight: 102.4 kg

DRUGS (15)
  1. ZYPREXA [Suspect]
     Dosage: 10 MG, 4/D
     Dates: start: 19991203, end: 20030601
  2. ZYPREXA [Suspect]
     Dosage: 5 MG, 2/D
  3. ZYPREXA [Suspect]
     Dosage: 5 MG, 4/D
  4. CLONAZEPAM [Concomitant]
     Dosage: 1 MG, 4/D
  5. CLONAZEPAM [Concomitant]
     Dosage: 0.5 MG, 4/D
  6. ZIPRASIDONE HCL [Concomitant]
     Dosage: 20 MG, UNK
     Dates: start: 20040310
  7. ZIPRASIDONE HCL [Concomitant]
     Dosage: 40 MG, EACH EVENING
  8. ZIPRASIDONE HCL [Concomitant]
     Dosage: 80 MG, 2/D
  9. TENORMIN [Concomitant]
     Dosage: 100 MG, DAILY (1/D)
     Dates: start: 20000101
  10. DILTIAZEM HCL [Concomitant]
     Dosage: 240 MG, UNK
  11. DOXEPIN HCL [Concomitant]
     Dosage: 75 MG, EACH EVENING
  12. DOXEPIN HCL [Concomitant]
     Dosage: 100 MG, EACH EVENING
  13. NEFAZODONE HCL [Concomitant]
     Dosage: 100 MG, 2/D
  14. FLUOXETINE [Concomitant]
     Dosage: 40 MG, DAILY (1/D)
  15. LORAZEPAM [Concomitant]
     Dosage: 1 MG, 4/D

REACTIONS (12)
  - DIABETIC COMA [None]
  - DIABETIC KETOACIDOSIS [None]
  - GLUCOSE TOLERANCE IMPAIRED [None]
  - GLYCOSURIA [None]
  - HYPERGLYCAEMIA [None]
  - HYPERINSULINISM [None]
  - HYPOAESTHESIA [None]
  - HYPOGLYCAEMIA [None]
  - INSULIN RESISTANCE [None]
  - OVERDOSE [None]
  - TYPE 2 DIABETES MELLITUS [None]
  - WEIGHT INCREASED [None]
